FAERS Safety Report 8549196-0 (Version None)
Quarter: 2012Q2

REPORT INFORMATION
  Report Type: 
  Country: None (occurrence: None)
  Receive Date: 20120416
  Receipt Date: 20080827
  Transmission Date: 20120825
  Serious: Yes (Other)
  Sender: FDA-Public Use
  Company Number: PHEH2008US07671

PATIENT
  Age: 63 Year
  Sex: Female

DRUGS (4)
  1. DIOVAN [Suspect]
     Indication: HYPERTENSION
     Dosage: 80 MG, QD ; 160 MG, QD
     Dates: start: 20080801
  2. DIOVAN [Suspect]
     Indication: HYPERTENSION
     Dosage: 80 MG, QD ; 160 MG, QD
     Dates: end: 20090801
  3. AMBIEN [Concomitant]
  4. PROVIGIL [Concomitant]

REACTIONS (3)
  - SWELLING [None]
  - MUCOSAL INFLAMMATION [None]
  - HYPERSENSITIVITY [None]
